FAERS Safety Report 11556629 (Version 1)
Quarter: 2015Q3

REPORT INFORMATION
  Report Type: Spontaneous
  Country: CA (occurrence: CA)
  Receive Date: 20150925
  Receipt Date: 20150925
  Transmission Date: 20151125
  Serious: Yes (Other)
  Sender: FDA-Public Use
  Company Number: CA-CONCORDIA PHARMACEUTICALS INC.-CO-PL-CA-2015-262

PATIENT
  Age: 36 Year
  Sex: Male

DRUGS (8)
  1. SODIUM AUROTHIOMALATE [Suspect]
     Active Substance: GOLD SODIUM THIOMALATE
     Indication: RHEUMATOID ARTHRITIS
     Dates: start: 201408, end: 20150206
  2. PLAQUENIL [Suspect]
     Active Substance: HYDROXYCHLOROQUINE SULFATE
     Indication: RHEUMATOID ARTHRITIS
     Dates: start: 200411, end: 200702
  3. HUMIRA [Suspect]
     Active Substance: ADALIMUMAB
     Indication: RHEUMATOID ARTHRITIS
     Route: 065
     Dates: start: 200706, end: 200712
  4. ENBREL [Suspect]
     Active Substance: ETANERCEPT
     Indication: RHEUMATOID ARTHRITIS
     Route: 065
     Dates: start: 200612, end: 200704
  5. ARAVA [Concomitant]
     Active Substance: LEFLUNOMIDE
     Dates: start: 200902
  6. METHOTREXATE [Concomitant]
     Active Substance: METHOTREXATE
     Dates: start: 200606
  7. SULFASALAZINE. [Suspect]
     Active Substance: SULFASALAZINE
     Indication: RHEUMATOID ARTHRITIS
     Route: 065
     Dates: start: 200612, end: 200704
  8. RITUXAN [Suspect]
     Active Substance: RITUXIMAB
     Indication: RHEUMATOID ARTHRITIS
     Route: 065
     Dates: start: 200807, end: 200902

REACTIONS (5)
  - Infection [Unknown]
  - Activities of daily living impaired [Unknown]
  - Insomnia [Unknown]
  - Drug ineffective [None]
  - Rheumatoid arthritis [Unknown]
